FAERS Safety Report 11930973 (Version 2)
Quarter: 2016Q1

REPORT INFORMATION
  Report Type: Spontaneous
  Country: US (occurrence: US)
  Receive Date: 20160120
  Receipt Date: 20160203
  Transmission Date: 20160526
  Serious: Yes (Hospitalization)
  Sender: FDA-Public Use
  Company Number: US-INCYTE CORPORATION-2015IN004303

PATIENT
  Sex: Male
  Weight: 54 kg

DRUGS (1)
  1. JAKAFI [Suspect]
     Active Substance: RUXOLITINIB
     Indication: MYELOFIBROSIS
     Dosage: 15 MG, BID
     Route: 048
     Dates: start: 20150806

REACTIONS (10)
  - Escherichia bacteraemia [Unknown]
  - Sinus tachycardia [Unknown]
  - Ascites [Unknown]
  - Mitral valve incompetence [Unknown]
  - Pleural effusion [Unknown]
  - Pneumonia [Unknown]
  - Diarrhoea [Unknown]
  - Pulmonary valve incompetence [Unknown]
  - Deep vein thrombosis [Unknown]
  - Tricuspid valve incompetence [Unknown]
